FAERS Safety Report 14472791 (Version 1)
Quarter: 2018Q1

REPORT INFORMATION
  Report Type: Spontaneous
  Country: US (occurrence: US)
  Receive Date: 20180201
  Receipt Date: 20180201
  Transmission Date: 20180509
  Serious: No
  Sender: FDA-Public Use
  Company Number: US-KADMON PHARMACEUTICALS, LLC-KAD201708-000963

PATIENT
  Age: 66 Year
  Sex: Female

DRUGS (4)
  1. LACTULOSE. [Concomitant]
     Active Substance: LACTULOSE
  2. SOVALDI [Suspect]
     Active Substance: SOFOSBUVIR
  3. BUTRANS [Concomitant]
     Active Substance: BUPRENORPHINE
  4. RIBASPHERE RIBAPAK [Suspect]
     Active Substance: RIBAVIRIN
     Route: 048

REACTIONS (3)
  - Vulvovaginal mycotic infection [Recovering/Resolving]
  - Back pain [Unknown]
  - Nausea [Unknown]
